FAERS Safety Report 5185595-5 (Version None)
Quarter: 2006Q4

REPORT INFORMATION
  Report Type: 
  Country: None (occurrence: None)
  Receive Date: 20061220
  Receipt Date: 20060814
  Transmission Date: 20070319
  Serious: No
  Sender: FDA-Public Use
  Company Number: US-GLAXOSMITHKLINE-A0616451A

PATIENT
  Age: 54 Year
  Sex: Male

DRUGS (3)
  1. NICODERM CQ [Suspect]
  2. NICODERM CQ [Suspect]
     Indication: DRUG USE FOR UNKNOWN INDICATION
  3. NICODERM CQ [Suspect]
     Indication: DRUG USE FOR UNKNOWN INDICATION

REACTIONS (3)
  - DIZZINESS [None]
  - INTENTIONAL DRUG MISUSE [None]
  - NIGHTMARE [None]
